FAERS Safety Report 26187622 (Version 1)
Quarter: 2025Q4

REPORT INFORMATION
  Report Type: Spontaneous
  Country: US (occurrence: None)
  Receive Date: 20251222
  Receipt Date: 20251222
  Transmission Date: 20260117
  Serious: No
  Sender: Harrow Health
  Company Number: US-HARROW-HAR-2025-US-00918

PATIENT

DRUGS (4)
  1. VEVYE [Suspect]
     Active Substance: CYCLOSPORINE
     Dates: start: 20250805, end: 20250827
  2. Losartin-Potassium-HC [Concomitant]
  3. ATORVASTATIN [Concomitant]
     Active Substance: ATORVASTATIN
  4. Metformin-HCL-ER [Concomitant]

REACTIONS (1)
  - Drug ineffective [Unknown]
